FAERS Safety Report 4578829-9 (Version None)
Quarter: 2005Q1

REPORT INFORMATION
  Report Type: 
  Country: None (occurrence: None)
  Receive Date: 20050209
  Receipt Date: 20050209
  Transmission Date: 20050727
  Serious: Yes (Hospitalization)
  Sender: FDA-Public Use
  Company Number: None

PATIENT
  Age: 43 Year
  Sex: Female
  Weight: 43.0917 kg

DRUGS (14)
  1. FLUDARABINE PHOSPHATE [Suspect]
     Indication: BONE MARROW CONDITIONING REGIMEN
     Dosage: 60 MG Q.D. IV
     Route: 042
     Dates: start: 20040109, end: 20040113
  2. FLUDARABINE PHOSPHATE [Suspect]
     Indication: STEM CELL TRANSPLANT
     Dosage: 60 MG Q.D. IV
     Route: 042
     Dates: start: 20040109, end: 20040113
  3. MELPHALAN [Suspect]
     Dosage: 250 MG QD IV
     Route: 042
     Dates: start: 20040114
  4. CAMPATH [Suspect]
     Indication: STEM CELL TRANSPLANT
     Dosage: 20 MG QD
     Dates: start: 20040109, end: 20040113
  5. PREDNISON [Concomitant]
  6. VORICONAZOLE [Concomitant]
  7. VALTREX [Concomitant]
  8. PREVACID [Concomitant]
  9. PENICILLIN [Concomitant]
  10. PAXIL [Concomitant]
  11. SINGULAIR [Concomitant]
  12. CELLCEPT [Concomitant]
  13. ADVIR [Concomitant]
  14. AZYTROMYCIN [Concomitant]

REACTIONS (2)
  - DYSPNOEA [None]
  - HYPOTENSION [None]
